FAERS Safety Report 6649561-2 (Version None)
Quarter: 2010Q1

REPORT INFORMATION
  Report Type: 
  Country: None (occurrence: None)
  Receive Date: 20100324
  Receipt Date: 20100324
  Transmission Date: 20100710
  Serious: Yes (Other)
  Sender: FDA-Public Use
  Company Number: None

PATIENT
  Age: 55 Year
  Sex: Male
  Weight: 108.8633 kg

DRUGS (1)
  1. KAPIDEX [Suspect]
     Indication: GASTROOESOPHAGEAL REFLUX DISEASE
     Dosage: 60MG 1 A DAY PO
     Route: 048
     Dates: start: 20100311, end: 20100316

REACTIONS (2)
  - BLOOD PRESSURE INCREASED [None]
  - HEART RATE INCREASED [None]
